FAERS Safety Report 21096459 (Version 3)
Quarter: 2023Q4

REPORT INFORMATION
  Report Type: Spontaneous
  Country: US (occurrence: US)
  Receive Date: 20220718
  Receipt Date: 20231120
  Transmission Date: 20240110
  Serious: No
  Sender: FDA-Public Use
  Company Number: US-TEVA-2022-US-2054172

PATIENT
  Age: 67 Year
  Sex: Female
  Weight: 79.38 kg

DRUGS (2)
  1. AJOVY [Suspect]
     Active Substance: FREMANEZUMAB-VFRM
     Indication: Migraine
     Dosage: 225 MG INJECTIONS MONTHLY
     Route: 058
     Dates: start: 202112
  2. STADOL NS [Concomitant]
     Active Substance: BUTORPHANOL TARTRATE
     Indication: Product used for unknown indication

REACTIONS (7)
  - Headache [Recovering/Resolving]
  - Injection site erythema [Unknown]
  - Injection site bruising [Unknown]
  - Accidental exposure to product [Unknown]
  - Wrong technique in device usage process [Unknown]
  - Device leakage [Unknown]
  - Device issue [Unknown]

NARRATIVE: CASE EVENT DATE: 20220702
